FAERS Safety Report 11894629 (Version 1)
Quarter: 2016Q1

REPORT INFORMATION
  Report Type: Spontaneous
  Country: US (occurrence: None)
  Receive Date: 20160106
  Receipt Date: 20160106
  Transmission Date: 20160526
  Serious: No
  Sender: FDA-Public Use
  Company Number: None

PATIENT
  Age: 35 Year
  Sex: Male
  Weight: 63.5 kg

DRUGS (10)
  1. SUPER BETA PROSTATE [Concomitant]
     Active Substance: DIETARY SUPPLEMENT
  2. SLO-NIACIN [Concomitant]
     Active Substance: DIETARY SUPPLEMENT
  3. GINSENG [Concomitant]
     Active Substance: ASIAN GINSENG
  4. GINGKO BILOBA [Concomitant]
  5. CENTRUM MULTI-VITAMIN [Concomitant]
  6. FISH OIL [Concomitant]
     Active Substance: FISH OIL
  7. MELATONIN [Concomitant]
     Active Substance: MELATONIN
  8. FINASTERIDE. [Suspect]
     Active Substance: FINASTERIDE
     Indication: BENIGN PROSTATIC HYPERPLASIA
     Route: 048
     Dates: start: 20151203, end: 20160105
  9. KERATIN [Concomitant]
     Active Substance: KERATIN
  10. CO-Q10 [Concomitant]

REACTIONS (5)
  - Testicular pain [None]
  - Ejaculation failure [None]
  - Ejaculation disorder [None]
  - Libido decreased [None]
  - Erectile dysfunction [None]

NARRATIVE: CASE EVENT DATE: 20160105
